FAERS Safety Report 15834087 (Version 2)
Quarter: 2019Q1

REPORT INFORMATION
  Report Type: Spontaneous
  Country: US (occurrence: US)
  Receive Date: 20190116
  Receipt Date: 20190326
  Transmission Date: 20190417
  Serious: Yes (Other)
  Sender: FDA-Public Use
  Company Number: US-BAUSCH-BL-2019-001022

PATIENT
  Age: 69 Year
  Sex: Male

DRUGS (1)
  1. RETISERT [Suspect]
     Active Substance: FLUOCINOLONE ACETONIDE
     Indication: PRODUCT USED FOR UNKNOWN INDICATION
     Dosage: AS DIRECTED
     Route: 031
     Dates: start: 20180129

REACTIONS (1)
  - Suture related complication [Recovered/Resolved]

NARRATIVE: CASE EVENT DATE: 201808
